FAERS Safety Report 7124713-6 (Version None)
Quarter: 2010Q4

REPORT INFORMATION
  Report Type: 
  Country: None (occurrence: None)
  Receive Date: 20101123
  Receipt Date: 20101123
  Transmission Date: 20110411
  Serious: Yes (Other)
  Sender: FDA-Public Use
  Company Number: None

PATIENT
  Sex: Male
  Weight: 110.9 kg

DRUGS (17)
  1. WARFARIN SODIUM [Suspect]
     Indication: ATRIAL FIBRILLATION
     Dosage: 7.5 MG, 5 MG, 5 MG DAILY PO
     Route: 048
     Dates: start: 20100923, end: 20100925
  2. DRONEDARONE HCL [Suspect]
     Indication: ATRIAL FIBRILLATION
     Dosage: 400 MG DAILY PO
     Route: 048
     Dates: start: 20100924, end: 20100929
  3. DRONEDARONE HCL [Suspect]
     Indication: CEREBROVASCULAR ACCIDENT PROPHYLAXIS
     Dosage: 400 MG DAILY PO
     Route: 048
     Dates: start: 20100924, end: 20100929
  4. ALFUZOSIN [Concomitant]
  5. AMLODIPINE [Concomitant]
  6. FAMOTIDINE [Concomitant]
  7. FOSINOPRIL SODIUM [Concomitant]
  8. INSULIN LISPRO [Concomitant]
  9. LEVOTHYROXINE [Concomitant]
  10. POTASSIUM CHLORIDE [Concomitant]
  11. SIMVASTATIN [Concomitant]
  12. TAMSULOSIN [Concomitant]
  13. ACETAMINOPHEN [Concomitant]
  14. HEPARIN [Concomitant]
  15. BUMETANIDE [Concomitant]
  16. FUROSEMIDE [Concomitant]
  17. VANCOMYCIN [Concomitant]

REACTIONS (2)
  - DRUG INTERACTION [None]
  - INTERNATIONAL NORMALISED RATIO INCREASED [None]
